FAERS Safety Report 10742907 (Version 5)
Quarter: 2017Q1

REPORT INFORMATION
  Report Type: Spontaneous
  Country: US (occurrence: US)
  Receive Date: 20150127
  Receipt Date: 20170316
  Transmission Date: 20170428
  Serious: Yes (Other)
  Sender: FDA-Public Use
  Company Number: US-BAXTER-2015BAX001731

PATIENT
  Age: 69 Year
  Sex: Female

DRUGS (14)
  1. DIANEAL LOW CALCIUM PERITONEAL DIALYSIS SOLUTION WITH DEXTROSE [Suspect]
     Active Substance: CALCIUM CHLORIDE\DEXTROSE\MAGNESIUM CHLORIDE\SODIUM CHLORIDE\SODIUM LACTATE
     Indication: END STAGE RENAL DISEASE
  2. DIANEAL LOW CALCIUM PERITONEAL DIALYSIS SOLUTION WITH DEXTROSE [Suspect]
     Active Substance: CALCIUM CHLORIDE\DEXTROSE\MAGNESIUM CHLORIDE\SODIUM CHLORIDE\SODIUM LACTATE
     Indication: END STAGE RENAL DISEASE
  3. DIANEAL LOW CALCIUM PERITONEAL DIALYSIS SOLUTION WITH DEXTROSE [Suspect]
     Active Substance: CALCIUM CHLORIDE\DEXTROSE\MAGNESIUM CHLORIDE\SODIUM CHLORIDE\SODIUM LACTATE
     Indication: PERITONEAL DIALYSIS
     Dosage: 5 CYCLES OF 2200 TOTAL FILL VOLUME
     Route: 033
     Dates: start: 20120119
  4. VENOFER [Concomitant]
     Active Substance: IRON SUCROSE
     Route: 042
     Dates: start: 20150508
  5. INSULIN [Concomitant]
     Active Substance: INSULIN NOS
     Indication: TYPE 2 DIABETES MELLITUS
     Route: 065
  6. EPOGEN [Concomitant]
     Active Substance: ERYTHROPOIETIN
     Indication: ANAEMIA
     Dosage: 20,000 UNITS SQ ABDOMEN
     Route: 058
     Dates: start: 20150424
  7. VENOFER [Concomitant]
     Active Substance: IRON SUCROSE
     Indication: PRODUCT USED FOR UNKNOWN INDICATION
     Dosage: INFUSED
     Route: 042
     Dates: start: 20150424
  8. DIANEAL LOW CALCIUM PERITONEAL DIALYSIS SOLUTION WITH DEXTROSE [Suspect]
     Active Substance: CALCIUM CHLORIDE\DEXTROSE\MAGNESIUM CHLORIDE\SODIUM CHLORIDE\SODIUM LACTATE
     Indication: PERITONEAL DIALYSIS
     Dosage: 5 CYCLES OF 2200 TOTAL FILL VOLUME
     Route: 033
     Dates: start: 20120119
  9. SENSIPAR [Concomitant]
     Active Substance: CINACALCET HYDROCHLORIDE
     Dosage: INCREASED TO 60MG/DAY
     Route: 065
  10. EPOGEN [Concomitant]
     Active Substance: ERYTHROPOIETIN
     Dosage: 7,000 UNITS
     Route: 058
  11. SODIUM BICARBONATE. [Concomitant]
     Active Substance: SODIUM BICARBONATE
     Indication: PRODUCT USED FOR UNKNOWN INDICATION
     Route: 065
     Dates: end: 20150424
  12. EPOGEN [Concomitant]
     Active Substance: ERYTHROPOIETIN
     Dosage: 20,000 UNITS
     Route: 058
     Dates: start: 20150508
  13. SENSIPAR [Concomitant]
     Active Substance: CINACALCET HYDROCHLORIDE
     Indication: PRODUCT USED FOR UNKNOWN INDICATION
     Route: 065
  14. VANCOMYCIN [Suspect]
     Active Substance: VANCOMYCIN
     Indication: PERITONITIS BACTERIAL
     Route: 033
     Dates: start: 20150113

REACTIONS (18)
  - Blood glucose abnormal [Unknown]
  - Peritonitis bacterial [Recovered/Resolved]
  - Peritonitis bacterial [Recovered/Resolved]
  - Chest pain [Recovering/Resolving]
  - Blood glucose decreased [Unknown]
  - Device malfunction [Unknown]
  - Decreased appetite [Unknown]
  - Pain in extremity [Recovering/Resolving]
  - Device issue [Unknown]
  - Hypophagia [Unknown]
  - Nausea [Recovered/Resolved]
  - Vomiting [Recovered/Resolved]
  - Peritonitis bacterial [Recovered/Resolved]
  - Drug hypersensitivity [Recovering/Resolving]
  - Procedural complication [Unknown]
  - Dyspepsia [Recovering/Resolving]
  - Weight decreased [Recovered/Resolved]
  - Diabetes mellitus [Recovering/Resolving]

NARRATIVE: CASE EVENT DATE: 20150111
